FAERS Safety Report 9472395 (Version 2)
Quarter: 2013Q4

REPORT INFORMATION
  Report Type: Report from Study
  Country: FR (occurrence: FR)
  Receive Date: 20130823
  Receipt Date: 20131121
  Transmission Date: 20140711
  Serious: Yes (Death, Other)
  Sender: FDA-Public Use
  Company Number: FR-PFIZER INC-2013241273

PATIENT
  Age: 84 Year
  Sex: Female
  Weight: 54 kg

DRUGS (5)
  1. CRIZOTINIB [Suspect]
     Indication: LUNG ADENOCARCINOMA METASTATIC
     Dosage: 250 MG, 2X/DAY
     Route: 048
     Dates: start: 20120606, end: 20120710
  2. CORTANCYL [Concomitant]
     Indication: PALLIATIVE CARE
     Dosage: 5 MG, 1X/DAY
     Route: 048
     Dates: start: 20120618
  3. OXYCONTIN [Concomitant]
     Indication: PALLIATIVE CARE
     Dosage: 20 MG DAILY IN 2 INTAKES
     Route: 048
     Dates: start: 20120618
  4. OXYNORM [Concomitant]
     Indication: PALLIATIVE CARE
     Dosage: 20 MG, DAILY IN 4 INTAKES
     Route: 048
     Dates: start: 20120618
  5. LYRICA [Concomitant]
     Indication: PALLIATIVE CARE
     Dosage: 50 UNK, DAILY IN 2 INTAKES
     Route: 048
     Dates: start: 20120618

REACTIONS (2)
  - Cardio-respiratory arrest [Fatal]
  - Cardiac failure [Unknown]
